FAERS Safety Report 7503639-X (Version None)
Quarter: 2011Q2

REPORT INFORMATION
  Report Type: 
  Country: None (occurrence: None)
  Receive Date: 20110525
  Receipt Date: 20110516
  Transmission Date: 20111010
  Serious: Yes (Hospitalization)
  Sender: FDA-Public Use
  Company Number: US-ASTRAZENECA-2011SE29762

PATIENT
  Age: 18501 Day
  Sex: Female
  Weight: 49 kg

DRUGS (11)
  1. NEXIUM [Concomitant]
     Indication: GASTROOESOPHAGEAL REFLUX DISEASE
     Route: 048
  2. OXYCODONE HCL [Concomitant]
     Indication: PAIN
     Route: 048
  3. VANDETANIB [Suspect]
     Indication: TRANSITIONAL CELL CARCINOMA
     Route: 048
     Dates: start: 20090218
  4. LEXAPRO [Concomitant]
     Indication: DEPRESSION
     Route: 048
  5. ATIVAN [Concomitant]
     Indication: ANXIETY
     Route: 048
  6. AMLODIPINE [Concomitant]
     Indication: HYPERTENSION
     Route: 048
  7. FENTANYL [Concomitant]
     Indication: PAIN
     Route: 062
  8. ZOFRAN [Concomitant]
     Indication: NAUSEA
     Dosage: AS REQUIRED
     Route: 048
     Dates: start: 20090225
  9. GEMCITABINE [Suspect]
     Indication: TRANSITIONAL CELL CARCINOMA
     Route: 042
     Dates: start: 20090218
  10. OXALIPLATIN [Suspect]
     Indication: TRANSITIONAL CELL CARCINOMA
     Route: 042
     Dates: start: 20090218
  11. NEURONTIN [Concomitant]
     Indication: PAIN
     Route: 048
     Dates: start: 20090216

REACTIONS (2)
  - PAIN IN EXTREMITY [None]
  - DEEP VEIN THROMBOSIS [None]
